FAERS Safety Report 5379849-7 (Version None)
Quarter: 2007Q3

REPORT INFORMATION
  Report Type: 
  Country: None (occurrence: None)
  Receive Date: 20070703
  Receipt Date: 20070625
  Transmission Date: 20080115
  Serious: Yes (Death)
  Sender: FDA-Public Use
  Company Number: 2007EU001362

PATIENT
  Age: 64 Year
  Sex: Male

DRUGS (8)
  1. TACROLIMUS [Suspect]
     Indication: LIVER TRANSPLANT
     Dosage: 2 MG/D, ORAL
     Route: 048
     Dates: start: 20050521
  2. MYCOPHENOLATE MOFETIL [Suspect]
     Indication: LIVER TRANSPLANT
     Dosage: SEE IMAGE
     Route: 042
     Dates: start: 20050521
  3. MYCOPHENOLATE MOFETIL [Suspect]
     Indication: LIVER TRANSPLANT
     Dosage: SEE IMAGE
     Route: 042
     Dates: start: 20050521
  4. METHYLPREDNISOLONE [Suspect]
     Indication: LIVER TRANSPLANT
     Dosage: 250 MG/D
     Dates: start: 20050521, end: 20050521
  5. PREDNISONE TAB [Suspect]
     Indication: LIVER TRANSPLANT
     Dosage: 10 MG/D
     Dates: start: 20050522, end: 20050704
  6. CAPTOPRIL [Concomitant]
  7. ACICLOVIR (ACICLOVIR SODIUM) [Concomitant]
  8. FENTANYL CITRATE [Concomitant]

REACTIONS (6)
  - ASPERGILLOSIS [None]
  - CYTOMEGALOVIRUS GASTROENTERITIS [None]
  - CYTOMEGALOVIRUS HEPATITIS [None]
  - CYTOMEGALOVIRUS INFECTION [None]
  - SEPSIS [None]
  - SYSTEMIC INFLAMMATORY RESPONSE SYNDROME [None]
